FAERS Safety Report 17864215 (Version 2)
Quarter: 2020Q2

REPORT INFORMATION
  Report Type: Spontaneous
  Country: CA (occurrence: CA)
  Receive Date: 20200605
  Receipt Date: 20200605
  Transmission Date: 20200714
  Serious: Yes (Other)
  Sender: FDA-Public Use
  Company Number: CA-ORION CORPORATION ORION PHARMA-TREX2020-2193

PATIENT
  Sex: Male

DRUGS (4)
  1. PREDNISONE. [Concomitant]
     Active Substance: PREDNISONE
     Route: 065
  2. BABY ASPIRIN [Concomitant]
     Active Substance: ASPIRIN
     Route: 065
  3. METHOTREXATE (TRADE NAME UNKNOWN) [Suspect]
     Active Substance: METHOTREXATE
     Indication: PRODUCT USED FOR UNKNOWN INDICATION
     Dosage: Q (UNK)
     Route: 065
     Dates: start: 2016, end: 201703
  4. ADALAT [Concomitant]
     Active Substance: NIFEDIPINE
     Route: 065

REACTIONS (4)
  - Treatment failure [Unknown]
  - Drug intolerance [Unknown]
  - Blood disorder [Unknown]
  - Leukopenia [Unknown]
